FAERS Safety Report 10655304 (Version 3)
Quarter: 2015Q1

REPORT INFORMATION
  Report Type: Report from Study
  Country: US (occurrence: US)
  Receive Date: 20141216
  Receipt Date: 20150116
  Transmission Date: 20150720
  Serious: Yes (Other)
  Sender: FDA-Public Use
  Company Number: PHEH2014US013291

PATIENT
  Age: 58 Year
  Sex: Female
  Weight: 59.86 kg

DRUGS (2)
  1. SIGNIFOR [Suspect]
     Active Substance: PASIREOTIDE
     Dosage: 600 UG, BID
     Route: 058
  2. SIGNIFOR [Suspect]
     Active Substance: PASIREOTIDE
     Indication: CUSHING^S SYNDROME
     Dosage: 300 UG, BID
     Route: 058
     Dates: start: 20140624

REACTIONS (14)
  - Eyelid oedema [Recovered/Resolved]
  - Pain [Not Recovered/Not Resolved]
  - Hypercorticoidism [Unknown]
  - Arthralgia [Unknown]
  - Osteoporosis [Unknown]
  - Product use issue [Unknown]
  - Eye swelling [Recovered/Resolved]
  - Osteoarthritis [Unknown]
  - Gait disturbance [Unknown]
  - Hypoaesthesia [Not Recovered/Not Resolved]
  - Angioedema [Recovered/Resolved]
  - Peripheral swelling [Recovered/Resolved]
  - Myalgia [Recovered/Resolved]
  - Swelling face [Recovered/Resolved]

NARRATIVE: CASE EVENT DATE: 20140625
